FAERS Safety Report 7296451-0 (Version None)
Quarter: 2011Q1

REPORT INFORMATION
  Report Type: 
  Country: None (occurrence: None)
  Receive Date: 20110216
  Receipt Date: 20110204
  Transmission Date: 20110831
  Serious: Yes (Hospitalization)
  Sender: FDA-Public Use
  Company Number: DE-ROCHE-725404

PATIENT
  Sex: Female
  Weight: 55 kg

DRUGS (16)
  1. BLINDED OCRELIZUMAB [Suspect]
     Indication: RHEUMATOID ARTHRITIS
     Dosage: FREQUENCY: DAY 1+15, LAST DOSE PRIOR SAE: 19 JANUARY 2010, FORM: FLUID
     Route: 042
     Dates: start: 20080915
  2. METHOTREXATE [Suspect]
     Indication: RHEUMATOID ARTHRITIS
     Route: 065
     Dates: start: 20080601
  3. TOCILIZUMAB [Suspect]
     Route: 065
     Dates: start: 20100706, end: 20100706
  4. SANDOCAL [Concomitant]
     Dates: start: 20060101
  5. HCT [Concomitant]
     Dates: start: 20080101
  6. VALORON [Concomitant]
     Dates: start: 20100601, end: 20100830
  7. CONCOR [Concomitant]
     Dates: start: 20080601
  8. OMEPRAZOLE [Concomitant]
     Dates: start: 20090801
  9. TOCILIZUMAB [Suspect]
     Route: 065
     Dates: start: 20100803, end: 20100803
  10. ASPIRIN [Concomitant]
     Dates: start: 20081202
  11. TOCILIZUMAB [Suspect]
     Indication: RHEUMATOID ARTHRITIS
     Dosage: DOSE LEVEL: 8 MG/KG
     Route: 065
     Dates: start: 20100531, end: 20100531
  12. METHOTREXATE [Suspect]
     Route: 065
     Dates: start: 19990501, end: 20100901
  13. VOLTAREN [Suspect]
     Indication: RHEUMATOID ARTHRITIS
     Dosage: VOLTAREN RESINAT
     Route: 065
     Dates: start: 20100608, end: 20100901
  14. DIGIMERCK [Concomitant]
     Dates: start: 20080101
  15. APROVEL [Concomitant]
     Dates: start: 20100117
  16. FOLIC ACID [Concomitant]
     Dates: start: 19990501

REACTIONS (1)
  - HEPATITIS TOXIC [None]
